FAERS Safety Report 13472458 (Version 1)
Quarter: 2017Q2

REPORT INFORMATION
  Report Type: Spontaneous
  Country: SI (occurrence: SI)
  Receive Date: 20170424
  Receipt Date: 20170424
  Transmission Date: 20170830
  Serious: Yes (Death, Other)
  Sender: FDA-Public Use
  Company Number: SI-BAYER-2017-072530

PATIENT
  Age: 64 Year
  Sex: Male

DRUGS (2)
  1. STIVARGA [Suspect]
     Active Substance: REGORAFENIB
     Indication: COLON CANCER
  2. STIVARGA [Suspect]
     Active Substance: REGORAFENIB
     Indication: RECTAL ADENOCARCINOMA
     Dosage: DAILY DOSE 120 MG
     Dates: start: 201411, end: 201502

REACTIONS (8)
  - Metastases to liver [None]
  - Metastases to pelvis [None]
  - Tumour marker increased [Not Recovered/Not Resolved]
  - Hydronephrosis [None]
  - Fatigue [None]
  - Hypertension [None]
  - Metastases to lymph nodes [None]
  - Weight decreased [None]

NARRATIVE: CASE EVENT DATE: 201412
